FAERS Safety Report 22918424 (Version 2)
Quarter: 2023Q4

REPORT INFORMATION
  Report Type: Spontaneous
  Country: US (occurrence: US)
  Receive Date: 20230907
  Receipt Date: 20231108
  Transmission Date: 20240110
  Serious: Yes (Other)
  Sender: FDA-Public Use
  Company Number: US-JNJFOC-20210436709

PATIENT
  Age: 73 Year
  Sex: Female
  Weight: 52.21 kg

DRUGS (5)
  1. JANSSEN COVID-19 VACCINE [Suspect]
     Active Substance: AD26.COV2.S
     Indication: COVID-19 prophylaxis
     Dosage: DOSE 1
     Route: 065
     Dates: start: 20210405, end: 20210405
  2. SPIKEVAX (ELASOMERAN) [Suspect]
     Active Substance: ELASOMERAN
     Indication: COVID-19 prophylaxis
     Dosage: DOSE 2
     Route: 065
  3. SYMTUZA [Suspect]
     Active Substance: COBICISTAT\DARUNAVIR\EMTRICITABINE\TENOFOVIR ALAFENAMIDE
     Indication: HIV infection
     Dosage: PATIENT WAS ON SYMTUZA FOR ABOUT 5 YEARS.
     Route: 065
  4. HYALURONIC ACID [Concomitant]
     Active Substance: HYALURONIC ACID
     Indication: Product used for unknown indication
     Route: 065
  5. BOTOX [Concomitant]
     Active Substance: ONABOTULINUMTOXINA
     Indication: Product used for unknown indication
     Route: 065

REACTIONS (16)
  - Cachexia [Unknown]
  - Vaccination failure [Unknown]
  - Pain [Unknown]
  - Therapeutic response unexpected [Unknown]
  - Thyroid disorder [Unknown]
  - Gastrointestinal disorder [Unknown]
  - Depressed mood [Unknown]
  - Intermenstrual bleeding [Unknown]
  - White blood cell count decreased [Unknown]
  - Malaise [Unknown]
  - Chills [Unknown]
  - Fatigue [Unknown]
  - Asthenia [Unknown]
  - Pyrexia [Unknown]
  - Headache [Recovered/Resolved]
  - COVID-19 immunisation [Unknown]

NARRATIVE: CASE EVENT DATE: 20210401
